FAERS Safety Report 9470438 (Version 3)
Quarter: 2013Q3

REPORT INFORMATION
  Report Type: Spontaneous
  Country: IT (occurrence: IT)
  Receive Date: 20130822
  Receipt Date: 20130823
  Transmission Date: 20140515
  Serious: Yes (Death, Hospitalization)
  Sender: FDA-Public Use
  Company Number: IT-TEVA-406006ISR

PATIENT
  Age: 61 Year
  Sex: Female

DRUGS (2)
  1. METFORMIN [Suspect]
     Indication: DIABETES MELLITUS
     Dosage: 1500 MILLIGRAM DAILY;
     Route: 048
     Dates: start: 20050101, end: 20130202
  2. DICLOFENAC [Suspect]
     Indication: BACK PAIN
     Dosage: 2 DOSAGE FORMS DAILY;
     Route: 030
     Dates: start: 20130131, end: 20130202

REACTIONS (4)
  - Multi-organ failure [Fatal]
  - Metabolic acidosis [Fatal]
  - Shock [Fatal]
  - Sepsis [Fatal]
